FAERS Safety Report 20745250 (Version 1)
Quarter: 2022Q2

REPORT INFORMATION
  Report Type: Spontaneous
  Country: US (occurrence: US)
  Receive Date: 20220425
  Receipt Date: 20220425
  Transmission Date: 20220720
  Serious: No
  Sender: FDA-Public Use
  Company Number: US-PFIZER INC-202101275448

PATIENT
  Age: 57 Year
  Sex: Female

DRUGS (1)
  1. XELJANZ XR [Suspect]
     Active Substance: TOFACITINIB CITRATE
     Indication: Rheumatoid arthritis
     Dosage: 11 MG, DAILY
     Route: 048
     Dates: start: 202106

REACTIONS (6)
  - Product dose omission issue [Unknown]
  - Musculoskeletal stiffness [Unknown]
  - Swelling [Not Recovered/Not Resolved]
  - Discouragement [Unknown]
  - Depressed mood [Unknown]
  - Sinusitis [Unknown]
